FAERS Safety Report 20389038 (Version 1)
Quarter: 2022Q1

REPORT INFORMATION
  Report Type: Spontaneous
  Country: GB (occurrence: GB)
  Receive Date: 20220128
  Receipt Date: 20220128
  Transmission Date: 20220423
  Serious: Yes (Death, Hospitalization, Other)
  Sender: FDA-Public Use
  Company Number: GB-PFIZER INC-2021192518

PATIENT
  Sex: Male

DRUGS (2)
  1. ACYCLOVIR [Suspect]
     Active Substance: ACYCLOVIR
     Indication: Product used for unknown indication
     Dosage: UNKNOWN
     Route: 065
  2. TOZINAMERAN [Suspect]
     Active Substance: TOZINAMERAN
     Indication: COVID-19 immunisation
     Dosage: SINGLE DOSE
     Dates: start: 20210108, end: 20210108

REACTIONS (18)
  - Myocardial infarction [Fatal]
  - Respiratory disorder [Unknown]
  - Hypoxia [Unknown]
  - Unresponsive to stimuli [Unknown]
  - Amnesia [Unknown]
  - Feeling cold [Unknown]
  - Decreased appetite [Unknown]
  - Abnormal behaviour [Unknown]
  - Indifference [Unknown]
  - Disturbance in attention [Unknown]
  - Pain [Unknown]
  - Gait disturbance [Unknown]
  - Fall [Unknown]
  - Epistaxis [Unknown]
  - Asthenia [Unknown]
  - Illness [Unknown]
  - Emotional distress [Unknown]
  - Feeling abnormal [Unknown]

NARRATIVE: CASE EVENT DATE: 20210225
